FAERS Safety Report 8005678-1 (Version None)
Quarter: 2011Q4

REPORT INFORMATION
  Report Type: 
  Country: None (occurrence: None)
  Receive Date: 20111223
  Receipt Date: 20111214
  Transmission Date: 20120403
  Serious: Yes (Other)
  Sender: FDA-Public Use
  Company Number: IE-ROCHE-1022771

PATIENT
  Sex: Female

DRUGS (3)
  1. AVASTIN [Suspect]
     Indication: BREAST CANCER
     Dosage: ON DAY 1
     Route: 042
  2. DOCETAXEL [Suspect]
     Indication: BREAST CANCER
  3. CYCLOPHOSPHAMIDE [Suspect]
     Indication: BREAST CANCER

REACTIONS (11)
  - INTESTINAL PERFORATION [None]
  - CANCER IN REMISSION [None]
  - ANAPHYLACTIC REACTION [None]
  - PROTEINURIA [None]
  - NEUTROPENIC INFECTION [None]
  - ABSCESS [None]
  - HYPERTENSION [None]
  - INFECTION [None]
  - ARTHRALGIA [None]
  - FISTULA [None]
  - BREAST CANCER RECURRENT [None]
